FAERS Safety Report 5350756-9 (Version None)
Quarter: 2007Q2

REPORT INFORMATION
  Report Type: 
  Country: None (occurrence: None)
  Receive Date: 20070608
  Receipt Date: 20070604
  Transmission Date: 20071010
  Serious: Yes (Other)
  Sender: FDA-Public Use
  Company Number: US-SANOFI-SYNTHELABO-A03200703443

PATIENT
  Age: 74 Year
  Sex: Female

DRUGS (6)
  1. PLAVIX [Suspect]
     Indication: THROMBOSIS PROPHYLAXIS
     Route: 048
     Dates: start: 20060801
  2. ACTONEL [Concomitant]
     Dosage: UNK
     Route: 048
  3. ATENOLOL [Concomitant]
     Dosage: UNK
     Route: 048
  4. BENICAR [Concomitant]
     Dosage: UNK
     Route: 048
  5. ACTOS [Concomitant]
     Dosage: UNK
     Route: 048
  6. GLUCOTROL [Concomitant]
     Dosage: UNK
     Route: 048

REACTIONS (3)
  - DRUG INEFFECTIVE [None]
  - MEDICATION RESIDUE [None]
  - THROMBOSIS [None]
